FAERS Safety Report 14210820 (Version 1)
Quarter: 2017Q4

REPORT INFORMATION
  Report Type: Spontaneous
  Country: US (occurrence: US)
  Receive Date: 20171121
  Receipt Date: 20171121
  Transmission Date: 20180321
  Serious: No
  Sender: FDA-Public Use
  Company Number: US-BAUSCH-BL-2017-009573

PATIENT
  Age: 68 Year
  Sex: Female
  Weight: 79.45 kg

DRUGS (5)
  1. LOTEMAX [Suspect]
     Active Substance: LOTEPREDNOL ETABONATE
     Indication: POSTOPERATIVE CARE
     Route: 047
     Dates: start: 201703
  2. LOTEMAX [Suspect]
     Active Substance: LOTEPREDNOL ETABONATE
     Route: 047
     Dates: start: 20170404, end: 20170409
  3. ASPIRIN. [Concomitant]
     Active Substance: ASPIRIN
     Indication: PRODUCT USED FOR UNKNOWN INDICATION
  4. NORVASC [Concomitant]
     Active Substance: AMLODIPINE BESYLATE
     Indication: HYPERTENSION
  5. METFORMIN [Concomitant]
     Active Substance: METFORMIN HYDROCHLORIDE
     Indication: DIABETES MELLITUS

REACTIONS (4)
  - Photopsia [Not Recovered/Not Resolved]
  - Unevaluable event [Unknown]
  - Panic attack [Unknown]
  - Vision blurred [Not Recovered/Not Resolved]

NARRATIVE: CASE EVENT DATE: 2017
